FAERS Safety Report 19912514 (Version 1)
Quarter: 2021Q4

REPORT INFORMATION
  Report Type: Spontaneous
  Country: US (occurrence: US)
  Receive Date: 20211004
  Receipt Date: 20211004
  Transmission Date: 20220304
  Serious: Yes (Hospitalization, Other)
  Sender: FDA-Public Use
  Company Number: US-GLAXOSMITHKLINE-US2021GSK205236

PATIENT
  Age: 59 Year
  Sex: Female

DRUGS (2)
  1. SUMATRIPTAN SUCCINATE [Suspect]
     Active Substance: SUMATRIPTAN SUCCINATE
     Indication: Migraine
     Dosage: ONE TAB ONCE OR TWICE A WEEK
  2. ACETAMINOPHEN [Concomitant]
     Active Substance: ACETAMINOPHEN
     Indication: Migraine
     Dosage: UNK

REACTIONS (17)
  - Colitis ischaemic [Recovered/Resolved]
  - Abdominal pain [Recovered/Resolved]
  - Diarrhoea haemorrhagic [Recovered/Resolved]
  - Hyperhidrosis [Recovered/Resolved]
  - Fatigue [Recovered/Resolved]
  - Nausea [Recovered/Resolved]
  - Vomiting [Recovered/Resolved]
  - Discomfort [Recovered/Resolved]
  - Abdominal tenderness [Recovered/Resolved]
  - Intestinal ischaemia [Recovered/Resolved]
  - Erythema [Recovered/Resolved]
  - Ulcer [Recovered/Resolved]
  - Necrosis [Recovered/Resolved]
  - Gastrointestinal inflammation [Recovered/Resolved]
  - Hypotension [Unknown]
  - Hypoperfusion [Recovered/Resolved]
  - Dehydration [Recovered/Resolved]
